FAERS Safety Report 6649481-3 (Version None)
Quarter: 2010Q1

REPORT INFORMATION
  Report Type: 
  Country: None (occurrence: None)
  Receive Date: 20100324
  Receipt Date: 20100319
  Transmission Date: 20100710
  Serious: Yes (Hospitalization)
  Sender: FDA-Public Use
  Company Number: US-GILEAD-2010-0027851

PATIENT
  Sex: Female
  Weight: 70.37 kg

DRUGS (10)
  1. LETAIRIS [Suspect]
     Indication: PULMONARY ARTERIAL HYPERTENSION
     Route: 048
     Dates: start: 20090320
  2. ADCIRCA [Concomitant]
  3. TYVASO [Concomitant]
  4. DILTIAZEM HCL [Concomitant]
  5. ENBREL [Concomitant]
  6. METHOTREXATE [Concomitant]
  7. NAPROXEN [Concomitant]
  8. PREDNISONE [Concomitant]
  9. PREVACID [Concomitant]
  10. FOLIC ACID [Concomitant]

REACTIONS (1)
  - STAPHYLOCOCCAL INFECTION [None]
